FAERS Safety Report 8722896 (Version 7)
Quarter: 2013Q3

REPORT INFORMATION
  Report Type: Spontaneous
  Country: US (occurrence: US)
  Receive Date: 20120814
  Receipt Date: 20130701
  Transmission Date: 20140515
  Serious: Yes (Hospitalization, Other)
  Sender: FDA-Public Use
  Company Number: US-009507513-1208USA000968

PATIENT
  Sex: Female
  Weight: 54.42 kg

DRUGS (6)
  1. FOSAMAX [Suspect]
     Indication: OSTEOPENIA
     Dosage: 40 MG, UNK
     Route: 048
     Dates: start: 199511, end: 200802
  2. FOSAMAX [Suspect]
     Indication: OSTEOPOROSIS
  3. HORMONES (UNSPECIFIED) [Concomitant]
     Dosage: UNK
     Dates: start: 1970
  4. SYNTHROID [Concomitant]
     Indication: AUTOIMMUNE THYROIDITIS
     Dosage: UNK
     Dates: start: 1990
  5. ALENDRONATE SODIUM [Suspect]
     Indication: OSTEOPENIA
     Dosage: 40 MG, QW
     Route: 048
     Dates: start: 200803, end: 201106
  6. ALENDRONATE SODIUM [Suspect]
     Indication: OSTEOPOROSIS

REACTIONS (37)
  - Femur fracture [Recovered/Resolved]
  - Intramedullary rod insertion [Unknown]
  - Pubis fracture [Unknown]
  - Knee arthroplasty [Unknown]
  - Acetabulum fracture [Recovered/Resolved]
  - Fall [Unknown]
  - Fall [Unknown]
  - Knee arthroplasty [Unknown]
  - Shoulder arthroplasty [Unknown]
  - Shoulder arthroplasty [Unknown]
  - Internal fixation of fracture [Unknown]
  - Knee arthroplasty [Unknown]
  - Peptic ulcer [Unknown]
  - Tooth extraction [Unknown]
  - Hypertension [Unknown]
  - Ilium fracture [Unknown]
  - Blood cholesterol increased [Unknown]
  - Herpes zoster [Unknown]
  - Blood cholesterol increased [Unknown]
  - Hypothyroidism [Unknown]
  - Osteoarthritis [Unknown]
  - Coronary artery disease [Unknown]
  - Scoliosis [Unknown]
  - Spinal osteoarthritis [Unknown]
  - Intervertebral disc space narrowing [Unknown]
  - Osteosclerosis [Unknown]
  - Arthritis [Unknown]
  - Osteoporotic fracture [Unknown]
  - Osteoarthritis [Unknown]
  - Rotator cuff syndrome [Unknown]
  - Pain [Not Recovered/Not Resolved]
  - Inappropriate schedule of drug administration [Unknown]
  - Lumbar spinal stenosis [Unknown]
  - Ligament sprain [Unknown]
  - Hand fracture [Unknown]
  - Rib fracture [Unknown]
  - Gastrooesophageal reflux disease [Unknown]
